FAERS Safety Report 23473225 (Version 1)
Quarter: 2024Q1

REPORT INFORMATION
  Report Type: Spontaneous
  Country: CL (occurrence: CL)
  Receive Date: 20240203
  Receipt Date: 20240203
  Transmission Date: 20240410
  Serious: Yes (Other)
  Sender: FDA-Public Use
  Company Number: CL-STRIDES ARCOLAB LIMITED-2024SP001163

PATIENT

DRUGS (7)
  1. HYDROCORTISONE [Suspect]
     Active Substance: HYDROCORTISONE
     Indication: Product used for unknown indication
     Dosage: UNK,( THE PATIENT^S MOTHER RECEIVED HYDROCORTISONE 100MG THEN 50MG EVERY EIGHT HOURS FOR 7 DAYS)
     Route: 064
  2. MEROPENEM [Suspect]
     Active Substance: MEROPENEM
     Indication: Product used for unknown indication
     Dosage: UNK, THE PATIENT^S MOTHER RECEIVED MEROPENEM 1G EVERY 12?HOURS FOR 2?DAYS THEN 1G EVERY 24 HOURS FOR
     Route: 064
  3. CEFAZOLIN [Suspect]
     Active Substance: CEFAZOLIN
     Indication: Product used for unknown indication
     Dosage: UNK
     Route: 064
  4. BETAMETHASONE [Suspect]
     Active Substance: BETAMETHASONE\BETAMETHASONE DIPROPIONATE
     Indication: Product used for unknown indication
     Dosage: UNK
     Route: 064
  5. NIFEDIPINE [Suspect]
     Active Substance: NIFEDIPINE
     Indication: Product used for unknown indication
     Dosage: UNK
     Route: 064
  6. MAGNESIUM SULFATE [Suspect]
     Active Substance: MAGNESIUM SULFATE\MAGNESIUM SULFATE HEPTAHYDRATE
     Indication: Product used for unknown indication
     Dosage: UNK
     Route: 064
  7. NOREPINEPHRINE [Suspect]
     Active Substance: NOREPINEPHRINE
     Indication: Product used for unknown indication
     Dosage: UNK, THE PATIENT^S MOTHER RECEIVED NORADRENALINE UPTO 1.5 MCG/KG/MIN
     Route: 064

REACTIONS (6)
  - Premature baby [Unknown]
  - Low birth weight baby [Unknown]
  - Neonatal asphyxia [Unknown]
  - Bronchopulmonary dysplasia [Unknown]
  - Hypoxic ischaemic encephalopathy neonatal [Unknown]
  - Foetal exposure during pregnancy [Unknown]
